FAERS Safety Report 9225182 (Version 1)
Quarter: 2013Q2

REPORT INFORMATION
  Report Type: Spontaneous
  Country: GB (occurrence: GB)
  Receive Date: 20130411
  Receipt Date: 20130411
  Transmission Date: 20140414
  Serious: Yes (Other)
  Sender: FDA-Public Use
  Company Number: GB-B.I. PHARMACEUTICALS,INC./RIDGEFIELD-2013-UK-00849UK

PATIENT
  Age: 71 Year
  Sex: Female
  Weight: 117 kg

DRUGS (1)
  1. SPIRIVA [Suspect]

REACTIONS (3)
  - Palpitations [Recovered/Resolved]
  - Epistaxis [Recovered/Resolved]
  - Wheezing [Recovered/Resolved]
